FAERS Safety Report 6174177-4 (Version None)
Quarter: 2009Q2

REPORT INFORMATION
  Report Type: 
  Country: None (occurrence: None)
  Receive Date: 20090430
  Receipt Date: 20080409
  Transmission Date: 20091009
  Serious: No
  Sender: FDA-Public Use
  Company Number: US-ASTRAZENECA-2008UW07137

PATIENT
  Age: 27 Year
  Sex: Female

DRUGS (1)
  1. NEXIUM [Suspect]
     Route: 048
     Dates: start: 20080406

REACTIONS (5)
  - CHEST PAIN [None]
  - EYE IRRITATION [None]
  - FEELING HOT [None]
  - HEADACHE [None]
  - NERVOUSNESS [None]
